FAERS Safety Report 20124841 (Version 1)
Quarter: 2021Q4

REPORT INFORMATION
  Report Type: Spontaneous
  Country: US (occurrence: US)
  Receive Date: 20211129
  Receipt Date: 20211129
  Transmission Date: 20220303
  Serious: Yes (Other)
  Sender: FDA-Public Use
  Company Number: US-GLAXOSMITHKLINE-US2021GSK244739

PATIENT
  Sex: Male

DRUGS (8)
  1. ZANTAC [Suspect]
     Active Substance: RANITIDINE HYDROCHLORIDE
     Indication: Dyspepsia
     Dosage: UNK, AS NEEDED
     Route: 065
     Dates: start: 201202, end: 201411
  2. ZANTAC [Suspect]
     Active Substance: RANITIDINE HYDROCHLORIDE
     Dosage: UNK, AS NEEDED
     Route: 065
     Dates: start: 201202, end: 201411
  3. RANITIDINE HYDROCHLORIDE [Suspect]
     Active Substance: RANITIDINE HYDROCHLORIDE
     Dosage: UNK, AS NEEDED
     Route: 065
     Dates: start: 201203, end: 201411
  4. RANITIDINE HYDROCHLORIDE [Suspect]
     Active Substance: RANITIDINE HYDROCHLORIDE
     Dosage: UNK, AS NEEDED
     Route: 065
     Dates: start: 201203, end: 201411
  5. RANITIDINE [Suspect]
     Active Substance: RANITIDINE
     Dosage: UNK, AS NEEDED
     Route: 065
     Dates: start: 201203, end: 201411
  6. RANITIDINE [Suspect]
     Active Substance: RANITIDINE
     Dosage: UNK, AS NEEDED
     Route: 065
     Dates: start: 201202, end: 201411
  7. RANITIDINE [Suspect]
     Active Substance: RANITIDINE
     Dosage: UNK, AS NEEDED
     Route: 065
     Dates: start: 201203, end: 201411
  8. ZANTAC [Suspect]
     Active Substance: RANITIDINE HYDROCHLORIDE
     Dosage: UNK, AS NEEDED
     Route: 065
     Dates: start: 201202, end: 201411

REACTIONS (1)
  - Prostate cancer [Unknown]
